FAERS Safety Report 11247489 (Version 1)
Quarter: 2015Q3

REPORT INFORMATION
  Report Type: Spontaneous
  Country: US (occurrence: US)
  Receive Date: 20150708
  Receipt Date: 20150708
  Transmission Date: 20151125
  Serious: No
  Sender: FDA-Public Use
  Company Number: US-BAYER-2015-366283

PATIENT
  Age: 50 Year
  Sex: Female

DRUGS (1)
  1. CLIMARA [Suspect]
     Active Substance: ESTRADIOL
     Dosage: 0.1MG/DAY
     Route: 062
     Dates: start: 20150619, end: 20150620

REACTIONS (3)
  - Application site rash [Unknown]
  - Application site swelling [None]
  - Discomfort [Unknown]

NARRATIVE: CASE EVENT DATE: 20150619
